FAERS Safety Report 19809879 (Version 1)
Quarter: 2021Q3

REPORT INFORMATION
  Report Type: Spontaneous
  Country: US (occurrence: US)
  Receive Date: 20210908
  Receipt Date: 20210908
  Transmission Date: 20211014
  Serious: Yes (Hospitalization, Other)
  Sender: FDA-Public Use
  Company Number: US-JNJFOC-20210904084

PATIENT
  Age: 71 Year
  Sex: Male

DRUGS (1)
  1. INFLIXIMAB, RECOMBINANT [Suspect]
     Active Substance: INFLIXIMAB
     Indication: CROHN^S DISEASE
     Route: 042

REACTIONS (4)
  - Enterococcal bacteraemia [Recovering/Resolving]
  - Septic shock [Recovering/Resolving]
  - Strongyloidiasis [Recovering/Resolving]
  - Pneumonia [Recovering/Resolving]
